FAERS Safety Report 10757723 (Version 1)
Quarter: 2015Q1

REPORT INFORMATION
  Report Type: Spontaneous
  Country: US (occurrence: US)
  Receive Date: 20150203
  Receipt Date: 20150203
  Transmission Date: 20150721
  Serious: Yes (Hospitalization)
  Sender: FDA-Public Use
  Company Number: US-TARO PHARMACEUTICALS U.S.A., INC-2015SUN00297

PATIENT
  Age: 69 Year
  Sex: Female

DRUGS (13)
  1. WARFARIN [Concomitant]
     Active Substance: WARFARIN
  2. MIDODRINE [Concomitant]
     Active Substance: MIDODRINE
  3. PREDNISOLONE. [Concomitant]
     Active Substance: PREDNISOLONE
  4. OXYCODONE-ACETAMINOPHEN [Concomitant]
     Active Substance: ACETAMINOPHEN\OXYCODONE HYDROCHLORIDE
  5. GABAPENTIN. [Concomitant]
     Active Substance: GABAPENTIN
  6. FLUTICASONE [Concomitant]
     Active Substance: FLUTICASONE\FLUTICASONE PROPIONATE
  7. METOPROLOL SUCCINATE. [Concomitant]
     Active Substance: METOPROLOL SUCCINATE
  8. ALPRAZOLAM. [Concomitant]
     Active Substance: ALPRAZOLAM
  9. LORATADINE. [Concomitant]
     Active Substance: LORATADINE
  10. AMIODARONE [Suspect]
     Active Substance: AMIODARONE
     Indication: ATRIAL FIBRILLATION
     Dosage: 200 MG/DAY
     Route: 065
  11. LIDODERM [Concomitant]
     Active Substance: LIDOCAINE
  12. ASPIRIN. [Concomitant]
     Active Substance: ASPIRIN
  13. CITALOPRAM [Concomitant]
     Active Substance: CITALOPRAM HYDROBROMIDE

REACTIONS (8)
  - Bacterial test [None]
  - Myxoedema coma [Recovered/Resolved]
  - Leukocytosis [None]
  - Hyperkalaemia [None]
  - Cardiomegaly [None]
  - Macrocytosis [None]
  - Hyponatraemia [None]
  - Anaemia [None]
